FAERS Safety Report 10486733 (Version 1)
Quarter: 2014Q3

REPORT INFORMATION
  Report Type: Spontaneous
  Country: US (occurrence: None)
  Receive Date: 20140930
  Receipt Date: 20140930
  Transmission Date: 20150326
  Serious: Yes (Disabling)
  Sender: FDA-Public Use
  Company Number: None

PATIENT
  Age: 46 Year
  Sex: Female

DRUGS (2)
  1. MINIVELLE [Suspect]
     Active Substance: ESTRADIOL
     Indication: FEELING ABNORMAL
     Dosage: 1 PATCH TWICE WEEKLY 2 PATCHES WEEKLY APPLIED AS MEDICATED PATCH TO SKIN
     Route: 061
     Dates: start: 20130930, end: 20140901
  2. MINIVELLE [Suspect]
     Active Substance: ESTRADIOL
     Indication: HOT FLUSH
     Dosage: 1 PATCH TWICE WEEKLY 2 PATCHES WEEKLY APPLIED AS MEDICATED PATCH TO SKIN
     Route: 061
     Dates: start: 20130930, end: 20140901

REACTIONS (7)
  - Application site pruritus [None]
  - Application site discolouration [None]
  - Application site scab [None]
  - Incorrect drug administration duration [None]
  - Application site erythema [None]
  - Application site reaction [None]
  - Product adhesion issue [None]

NARRATIVE: CASE EVENT DATE: 20140901
